FAERS Safety Report 8329697-0 (Version None)
Quarter: 2012Q2

REPORT INFORMATION
  Report Type: 
  Country: None (occurrence: None)
  Receive Date: 20120502
  Receipt Date: 20120426
  Transmission Date: 20120825
  Serious: Yes (Death, Hospitalization)
  Sender: FDA-Public Use
  Company Number: JP-GLAXOSMITHKLINE-B0777802A

PATIENT
  Sex: Male
  Weight: 76 kg

DRUGS (30)
  1. PROMACTA [Suspect]
     Dosage: 37.5MG PER DAY
     Route: 048
     Dates: start: 20110728, end: 20110914
  2. TS-1 [Suspect]
     Dosage: 100MG PER DAY
     Dates: start: 20110707, end: 20110721
  3. TS-1 [Suspect]
     Dosage: 100MG PER DAY
     Dates: start: 20111007, end: 20111021
  4. TS-1 [Suspect]
     Dosage: 100MG PER DAY
     Dates: start: 20111117, end: 20111201
  5. SOLU-CORTEF [Concomitant]
     Dosage: 100MG PER DAY
     Dates: start: 20110628, end: 20110628
  6. OXYCONTIN [Suspect]
     Indication: CANCER PAIN
     Dosage: 30MG PER DAY
     Route: 048
     Dates: start: 20120131, end: 20120301
  7. UNKNOWN DRUG [Concomitant]
     Indication: ADENOCARCINOMA PANCREAS
     Route: 065
  8. HYALEIN [Concomitant]
     Route: 031
  9. LOXONIN [Concomitant]
     Dosage: 180MG PER DAY
     Route: 048
     Dates: end: 20111006
  10. LENDORMIN [Concomitant]
     Dosage: .25MG PER DAY
     Route: 048
     Dates: start: 20110607
  11. GEMCITABINE [Concomitant]
     Dosage: 1850MG PER DAY
     Route: 042
     Dates: start: 20110622, end: 20110622
  12. MAGMITT [Concomitant]
     Dosage: 660MG PER DAY
     Route: 048
     Dates: start: 20120112
  13. INDOMETHACIN [Concomitant]
     Route: 061
     Dates: start: 20111222
  14. TS-1 [Suspect]
     Dosage: 100MG PER DAY
     Dates: start: 20110804, end: 20110818
  15. TS-1 [Suspect]
     Dosage: 100MG PER DAY
     Dates: start: 20120119, end: 20120124
  16. PROMACTA [Suspect]
     Dosage: 31.25MG PER DAY
     Route: 048
     Dates: start: 20110915, end: 20120124
  17. TS-1 [Suspect]
     Dosage: 100MG PER DAY
     Dates: start: 20111208, end: 20111222
  18. PRIMPERAN TAB [Concomitant]
     Dosage: 10MG PER DAY
     Dates: start: 20111108, end: 20111108
  19. PROMACTA [Suspect]
     Indication: IDIOPATHIC THROMBOCYTOPENIC PURPURA
     Dosage: 12.5MG PER DAY
     Route: 048
     Dates: start: 20110530, end: 20110614
  20. TS-1 [Suspect]
     Dosage: 100MG PER DAY
     Dates: start: 20111222, end: 20120105
  21. LANSOPRAZOLE [Concomitant]
     Dosage: 30MG PER DAY
     Route: 048
  22. DIOVAN [Concomitant]
     Dosage: 80MG PER DAY
     Route: 048
  23. ADONA (AC-17) [Concomitant]
     Indication: HAEMORRHAGE PROPHYLAXIS
     Dosage: 90MG PER DAY
     Route: 048
     Dates: start: 20110629, end: 20110707
  24. MORPHINE HYDROCHLORIDE [Concomitant]
     Indication: CANCER PAIN
     Route: 048
     Dates: start: 20120124, end: 20120130
  25. TS-1 [Suspect]
     Dosage: 100MG PER DAY
     Dates: start: 20110915, end: 20110929
  26. PROMACTA [Suspect]
     Dosage: 25MG PER DAY
     Route: 048
     Dates: start: 20110615, end: 20110727
  27. TS-1 [Suspect]
     Dosage: 100MG PER DAY
     Dates: start: 20110825, end: 20110908
  28. TS-1 [Suspect]
     Dosage: 100MG PER DAY
     Dates: start: 20111027, end: 20111110
  29. LOXONIN [Concomitant]
     Dosage: 120MG PER DAY
     Route: 048
     Dates: start: 20111007
  30. TRAMADOL HYDROCHLORIDE [Concomitant]
     Route: 048
     Dates: start: 20120112

REACTIONS (17)
  - ALKALOSIS [None]
  - DEEP VEIN THROMBOSIS [None]
  - INTESTINAL DILATATION [None]
  - LYMPHANGIOSIS CARCINOMATOSA [None]
  - PULMONARY EMBOLISM [None]
  - CARDIO-RESPIRATORY ARREST [None]
  - TRICUSPID VALVE INCOMPETENCE [None]
  - DILATATION VENTRICULAR [None]
  - PLEURAL EFFUSION [None]
  - RENAL DISORDER [None]
  - AORTIC VALVE INCOMPETENCE [None]
  - RESPIRATORY FAILURE [None]
  - GENERAL PHYSICAL HEALTH DETERIORATION [None]
  - LIVER DISORDER [None]
  - METASTASES TO PLEURA [None]
  - ATELECTASIS [None]
  - ILEUS PARALYTIC [None]
